FAERS Safety Report 8318356-6 (Version None)
Quarter: 2012Q2

REPORT INFORMATION
  Report Type: 
  Country: None (occurrence: None)
  Receive Date: 20120427
  Receipt Date: 20120417
  Transmission Date: 20120825
  Serious: Yes (Hospitalization)
  Sender: FDA-Public Use
  Company Number: NL-AMGEN-NLDSP2012025624

PATIENT
  Age: 68 Year
  Sex: Male
  Weight: 80 kg

DRUGS (8)
  1. HYDROCHLOROTHIAZIDE [Concomitant]
     Dosage: 25 MG, 1X/DAY
     Dates: start: 20010301
  2. NAPROXEN [Concomitant]
     Dosage: 500 MG, AS NEEDED
     Dates: start: 20010131
  3. IRBESARTAN [Concomitant]
     Dosage: 300 MG, 1X/DAY
     Dates: start: 20011010
  4. HUMIRA [Suspect]
     Indication: PSORIATIC ARTHROPATHY
     Dosage: 40 MG, WEEKLY
     Route: 058
     Dates: start: 20070824, end: 20100303
  5. METOPROLOL TARTRATE [Concomitant]
     Dosage: 50 MG, 1X/DAY
     Dates: start: 20110101
  6. COLCHICINE [Concomitant]
     Dosage: 0.5 MG, AS NEEDED
  7. CINNARIZINE [Concomitant]
     Dosage: 25 MG, AS NEEDED
  8. ENBREL [Suspect]
     Indication: PSORIATIC ARTHROPATHY
     Dosage: 50 MG, WEEKLY
     Route: 058
     Dates: start: 20100414, end: 20110926

REACTIONS (2)
  - ADENOCARCINOMA [None]
  - COLON CANCER [None]
